FAERS Safety Report 14849714 (Version 1)
Quarter: 2018Q2

REPORT INFORMATION
  Report Type: Spontaneous
  Country: ES (occurrence: ES)
  Receive Date: 20180504
  Receipt Date: 20180504
  Transmission Date: 20180711
  Serious: Yes (Other)
  Sender: FDA-Public Use
  Company Number: ES-PFIZER INC-2018185304

PATIENT
  Age: 59 Year
  Sex: Male

DRUGS (1)
  1. SALAZOPYRIN [Suspect]
     Active Substance: SULFASALAZINE
     Indication: ARTHRITIS
     Dosage: 500 MG, 2X/DAY(EVERY 12 HOURS)
     Route: 048
     Dates: start: 20180313, end: 20180320

REACTIONS (4)
  - Erythema [Unknown]
  - Tongue oedema [Unknown]
  - Pruritus genital [Unknown]
  - Face oedema [Unknown]

NARRATIVE: CASE EVENT DATE: 20180320
